FAERS Safety Report 8546356-X (Version None)
Quarter: 2012Q3

REPORT INFORMATION
  Report Type: 
  Country: None (occurrence: None)
  Receive Date: 20120727
  Receipt Date: 20111220
  Transmission Date: 20120928
  Serious: No
  Sender: FDA-Public Use
  Company Number: US-ASTRAZENECA-2011SE77123

PATIENT
  Age: 48 Year
  Sex: Female
  Weight: 104.3 kg

DRUGS (7)
  1. TRIPTAL [Concomitant]
  2. SEROQUEL XR [Suspect]
     Indication: DEPRESSION
     Route: 048
  3. CLONAZEPAM [Concomitant]
  4. AMLODIPINE [Concomitant]
  5. DUSTARIL [Concomitant]
  6. GABAPENTIN [Concomitant]
  7. ANAZOPRIL [Concomitant]

REACTIONS (1)
  - NASOPHARYNGITIS [None]
